FAERS Safety Report 5347210-7 (Version None)
Quarter: 2007Q2

REPORT INFORMATION
  Report Type: 
  Country: None (occurrence: None)
  Receive Date: 20070509
  Receipt Date: 20061004
  Transmission Date: 20071010
  Serious: Yes (Hospitalization)
  Sender: FDA-Public Use
  Company Number: PHEH2006US12499

PATIENT
  Age: 16 Year
  Sex: Female

DRUGS (2)
  1. TEGRETOL [Suspect]
     Indication: EPILEPSY
     Dosage: ORAL
     Route: 048
  2. LAMICTAL [Suspect]
     Indication: EPILEPSY
     Dates: start: 19980101, end: 20060901

REACTIONS (2)
  - ANTICONVULSANT DRUG LEVEL ABNORMAL [None]
  - COMPLEX PARTIAL SEIZURES [None]
